FAERS Safety Report 4525013-0 (Version None)
Quarter: 2004Q4

REPORT INFORMATION
  Report Type: 
  Country: None (occurrence: None)
  Receive Date: 20041210
  Receipt Date: 20041119
  Transmission Date: 20050328
  Serious: Yes (Hospitalization)
  Sender: FDA-Public Use
  Company Number: 2004103486

PATIENT
  Age: 76 Year
  Sex: Female
  Weight: 63.5036 kg

DRUGS (5)
  1. SINUTAB SINUS MAXIMUM STRENGTH WITHOUT DROWSINESS (PARACETAMOL, PSEUDO [Suspect]
     Indication: SINUS CONGESTION
     Dosage: 1 TABLET 1-2 TIMES A MONTH, ORAL
     Route: 048
  2. ASPIRIN [Suspect]
  3. ATENOLOL [Concomitant]
  4. POTASSIUM (POTASSIUM) [Concomitant]
  5. ANTIBIOTICS [Suspect]

REACTIONS (1)
  - COLITIS [None]
